FAERS Safety Report 12551504 (Version 1)
Quarter: 2016Q3

REPORT INFORMATION
  Report Type: Spontaneous
  Country: US (occurrence: US)
  Receive Date: 20160713
  Receipt Date: 20160713
  Transmission Date: 20161109
  Serious: Yes (Hospitalization)
  Sender: FDA-Public Use
  Company Number: US-AUROBINDO-AUR-APL-2016-08830

PATIENT
  Age: 69 Year
  Sex: Female

DRUGS (1)
  1. PREDNISONE 5MG [Suspect]
     Active Substance: PREDNISONE
     Indication: ASTHMA
     Dosage: 5 MG, UNK
     Route: 048

REACTIONS (3)
  - Adrenal insufficiency [Unknown]
  - Pneumonitis [Unknown]
  - Haemoptysis [Unknown]
